FAERS Safety Report 10677272 (Version 1)
Quarter: 2014Q4

REPORT INFORMATION
  Report Type: Other
  Country: GB (occurrence: GB)
  Receive Date: 20141226
  Receipt Date: 20141226
  Transmission Date: 20150529
  Serious: Yes (Other)
  Sender: FDA-Public Use
  Company Number: GB-MYLANLABS-2014M1014349

PATIENT

DRUGS (4)
  1. AZITHROMYCIN [Suspect]
     Active Substance: AZITHROMYCIN ANHYDROUS
     Dosage: STAT DOSE
     Route: 030
     Dates: start: 20141121, end: 20141121
  2. PARACETAMOL [Concomitant]
     Active Substance: ACETAMINOPHEN
     Dosage: DATE STARTED WAS 2 WEEKS PRIOR TO THE DATE STARTED FOR THE SUSPECT DRUGS.
     Route: 048
     Dates: start: 20141107
  3. IBUPROFEN. [Concomitant]
     Active Substance: IBUPROFEN
     Dosage: 200-400MG. THE DATE STARTED WAS 2 WEEKS PRIOR TO THE SUSPECT DRUGS.
     Route: 048
     Dates: start: 20141107
  4. SPECTINOMYCIN. [Suspect]
     Active Substance: SPECTINOMYCIN
     Dosage: STAT DOSE
     Route: 030
     Dates: start: 20141121, end: 20141121

REACTIONS (6)
  - Pharyngeal oedema [Recovered/Resolved]
  - Chest discomfort [Recovered/Resolved]
  - Dyspnoea [Recovered/Resolved]
  - Panic attack [Recovered/Resolved]
  - Dry mouth [Recovered/Resolved]
  - Back pain [Recovered/Resolved]

NARRATIVE: CASE EVENT DATE: 20141121
